FAERS Safety Report 9039734 (Version 1)
Quarter: 2013Q1

REPORT INFORMATION
  Report Type: Report from Study
  Country: US (occurrence: US)
  Receive Date: 20130130
  Receipt Date: 20130130
  Transmission Date: 20140127
  Serious: No
  Sender: FDA-Public Use
  Company Number: US-ABBOTT-12P-163-0941511-00

PATIENT
  Age: 51 Year
  Sex: Female

DRUGS (10)
  1. HUMIRA 40 MG/0.8 ML PEN [Suspect]
     Indication: CROHN^S DISEASE
     Dosage: LOADING DOSE
     Dates: start: 20120531, end: 20120531
  2. HUMIRA 40 MG/0.8 ML PEN [Suspect]
     Dates: start: 20120614, end: 20120614
  3. HUMIRA 40 MG/0.8 ML PEN [Suspect]
     Dates: start: 20120628
  4. IMURAN [Concomitant]
     Indication: CROHN^S DISEASE
     Dosage: 75MG DAILY
     Route: 048
  5. INDEROL [Concomitant]
     Indication: MIGRAINE PROPHYLAXIS
     Dosage: 20MG DAILY
     Route: 048
  6. CELEXA [Concomitant]
     Indication: PRODUCT USED FOR UNKNOWN INDICATION
     Dosage: 40MG DAILY
     Route: 048
  7. WELLBUTRIN XR [Concomitant]
     Indication: PRODUCT USED FOR UNKNOWN INDICATION
     Dosage: 150MG DAILY
     Route: 048
  8. MULTIVITAMIN [Concomitant]
     Indication: PRODUCT USED FOR UNKNOWN INDICATION
  9. VITAMIN D [Concomitant]
     Indication: VITAMIN SUPPLEMENTATION
  10. OCCUVITE [Concomitant]
     Indication: EYE DISORDER

REACTIONS (4)
  - Joint stiffness [Not Recovered/Not Resolved]
  - Injection site pain [Recovered/Resolved]
  - Injection site haemorrhage [Not Recovered/Not Resolved]
  - Joint swelling [Recovered/Resolved]
